FAERS Safety Report 20501498 (Version 1)
Quarter: 2022Q1

REPORT INFORMATION
  Report Type: Other
  Country: EG (occurrence: None)
  Receive Date: 20220222
  Receipt Date: 20220222
  Transmission Date: 20220423
  Serious: Yes (Other)
  Sender: FDA-Public Use
  Company Number: EG-ROCHE-3023310

PATIENT

DRUGS (3)
  1. RIBAVIRIN [Suspect]
     Active Substance: RIBAVIRIN
     Indication: Hepatitis C
     Dosage: 12.5 MG
     Route: 065
  2. OMBITASVIR\PARITAPREVIR\RITONAVIR [Suspect]
     Active Substance: OMBITASVIR\PARITAPREVIR\RITONAVIR
     Indication: Hepatitis C
     Dosage: 75/50 MG
     Route: 065
  3. SOFOSBUVIR [Suspect]
     Active Substance: SOFOSBUVIR
     Indication: Hepatitis C
     Route: 065

REACTIONS (26)
  - Pneumonia [Unknown]
  - Hepatic failure [Unknown]
  - Anaemia [Unknown]
  - Blood bilirubin increased [Unknown]
  - Fatigue [Unknown]
  - Dizziness [Unknown]
  - Confusional state [Unknown]
  - Dyspnoea [Unknown]
  - Palpitations [Unknown]
  - Chest pain [Unknown]
  - Cough [Unknown]
  - Musculoskeletal disorder [Unknown]
  - Headache [Unknown]
  - Pruritus [Unknown]
  - Gastrointestinal disorder [Unknown]
  - Insomnia [Unknown]
  - Nervousness [Unknown]
  - Neuropathy peripheral [Unknown]
  - Vision blurred [Unknown]
  - Oral candidiasis [Unknown]
  - Rhinorrhoea [Unknown]
  - Vertigo [Unknown]
  - Heavy menstrual bleeding [Unknown]
  - Oedema peripheral [Unknown]
  - Asthma [Unknown]
  - Dysphonia [Unknown]
